FAERS Safety Report 24575307 (Version 1)
Quarter: 2024Q4

REPORT INFORMATION
  Report Type: Spontaneous
  Country: GB (occurrence: GB)
  Receive Date: 20241104
  Receipt Date: 20241104
  Transmission Date: 20250114
  Serious: Yes (Other)
  Sender: TEVA
  Company Number: None

PATIENT
  Age: 31 Year
  Sex: Male
  Weight: 80 kg

DRUGS (1)
  1. OFLOXACIN [Suspect]
     Active Substance: OFLOXACIN
     Indication: Orchitis
     Route: 065
     Dates: start: 20240213, end: 20240218

REACTIONS (6)
  - Anxiety [Recovered/Resolved]
  - Medication error [Unknown]
  - Anxiety [Recovered/Resolved]
  - Panic attack [Recovered/Resolved]
  - Brain fog [Recovered/Resolved]
  - Sleep deficit [Recovered/Resolved]
